FAERS Safety Report 6615683-5 (Version None)
Quarter: 2010Q1

REPORT INFORMATION
  Report Type: 
  Country: None (occurrence: None)
  Receive Date: 20100226
  Receipt Date: 20100217
  Transmission Date: 20100710
  Serious: Yes (Hospitalization)
  Sender: FDA-Public Use
  Company Number: DSJ-2010-02503

PATIENT
  Age: 69 Year
  Sex: Male

DRUGS (3)
  1. OLMESARTAN MEDOXOMIL [Suspect]
     Indication: HYPERTENSION
     Dosage: 40 MG, PER ORAL
     Route: 048
     Dates: start: 20090801, end: 20100205
  2. CARVEDILOL [Concomitant]
  3. ACECOL (TEMOCAPRIL HYDROCHLORIDE) (TEMOCAPRIL HYDROCHLORIDE) [Concomitant]

REACTIONS (1)
  - AGRANULOCYTOSIS [None]
